FAERS Safety Report 8416256-4 (Version None)
Quarter: 2012Q2

REPORT INFORMATION
  Report Type: 
  Country: None (occurrence: None)
  Receive Date: 20120606
  Receipt Date: 20120524
  Transmission Date: 20120825
  Serious: Yes (Life-Threatening, Congenital Anomaly)
  Sender: FDA-Public Use
  Company Number: FR-ELI_LILLY_AND_COMPANY-FR201205008464

PATIENT

DRUGS (1)
  1. CYMBALTA [Suspect]
     Dosage: 120 MG, QD
     Route: 064
     Dates: end: 20120114

REACTIONS (4)
  - KLINEFELTER'S SYNDROME [None]
  - FOETAL EXPOSURE DURING PREGNANCY [None]
  - FOETAL DISTRESS SYNDROME [None]
  - POLYHYDRAMNIOS [None]
